FAERS Safety Report 10142838 (Version 2)
Quarter: 2014Q2

REPORT INFORMATION
  Report Type: Spontaneous
  Country: US (occurrence: US)
  Receive Date: 20140430
  Receipt Date: 20140507
  Transmission Date: 20141212
  Serious: No
  Sender: FDA-Public Use
  Company Number: US-TEVA-478524USA

PATIENT
  Sex: 0

DRUGS (1)
  1. CLARAVIS [Suspect]
     Indication: ACNE

REACTIONS (2)
  - Drug ineffective [Unknown]
  - Product physical issue [Unknown]
